FAERS Safety Report 8634586 (Version 2)
Quarter: 2012Q4

REPORT INFORMATION
  Report Type: 
  Country: JP (occurrence: JP)
  Receive Date: 20120626
  Receipt Date: 20120928
  Transmission Date: 20130627
  Serious: Yes (Other)
  Sender: FDA-Public Use
  Company Number: JP-JNJFOC-20120611609

PATIENT
  Age: 80 Year
  Sex: Female

DRUGS (8)
  1. FINIBAX [Suspect]
     Indication: WOUND INFECTION
     Route: 041
     Dates: start: 20120322, end: 20120328
  2. FINIBAX [Suspect]
     Indication: POSTOPERATIVE WOUND INFECTION
     Route: 041
     Dates: start: 20120322, end: 20120328
  3. CEFMETAZOLE SODIUM [Concomitant]
     Route: 065
     Dates: start: 20120315, end: 20120319
  4. GENTACIN [Concomitant]
     Indication: WOUND INFECTION
     Route: 065
     Dates: start: 20120320, end: 20120321
  5. GENTACIN [Concomitant]
     Indication: POSTOPERATIVE WOUND INFECTION
     Route: 065
     Dates: start: 20120320, end: 20120321
  6. LASIX [Concomitant]
     Route: 065
     Dates: start: 20120322
  7. KAKODIN [Concomitant]
     Route: 065
     Dates: start: 20120321, end: 20120327
  8. DIPRIVAN [Concomitant]
     Route: 065
     Dates: start: 20120321, end: 20120326

REACTIONS (2)
  - Alanine aminotransferase increased [Recovered/Resolved]
  - Aspartate aminotransferase increased [Recovered/Resolved]
